FAERS Safety Report 9230472 (Version 1)
Quarter: 2013Q2

REPORT INFORMATION
  Report Type: Spontaneous
  Country: FR (occurrence: FR)
  Receive Date: 20130415
  Receipt Date: 20130415
  Transmission Date: 20140414
  Serious: Yes (Other)
  Sender: FDA-Public Use
  Company Number: FR-ASTRAZENECA-2013SE12529

PATIENT
  Age: 27529 Day
  Sex: Male
  Weight: 80 kg

DRUGS (2)
  1. CRESTOR [Suspect]
     Indication: TYPE IIA HYPERLIPIDAEMIA
     Route: 048
     Dates: start: 20100415, end: 20130223
  2. CO RENITEC [Concomitant]
     Indication: HYPERTENSION
     Dates: start: 1988

REACTIONS (4)
  - Dyspnoea exertional [Recovered/Resolved]
  - Renal pain [Recovered/Resolved]
  - Blood urine present [Recovered/Resolved]
  - Arthralgia [Recovered/Resolved]
